FAERS Safety Report 18608879 (Version 1)
Quarter: 2020Q4

REPORT INFORMATION
  Report Type: Spontaneous
  Country: JP (occurrence: JP)
  Receive Date: 20201213
  Receipt Date: 20201213
  Transmission Date: 20210114
  Serious: Yes (Other)
  Sender: FDA-Public Use
  Company Number: JP-BEH-2020125955

PATIENT
  Age: 40 Year
  Sex: Female
  Weight: 60 kg

DRUGS (1)
  1. HIZENTRA [Suspect]
     Active Substance: HUMAN IMMUNOGLOBULIN G
     Indication: CHRONIC INFLAMMATORY DEMYELINATING POLYRADICULONEUROPATHY
     Dosage: 12 GRAM, QW
     Route: 058
     Dates: start: 20191016

REACTIONS (1)
  - Chronic inflammatory demyelinating polyradiculoneuropathy [Unknown]

NARRATIVE: CASE EVENT DATE: 20201203
